FAERS Safety Report 5715191-X (Version None)
Quarter: 2008Q2

REPORT INFORMATION
  Report Type: 
  Country: None (occurrence: None)
  Receive Date: 20080423
  Receipt Date: 20080408
  Transmission Date: 20081010
  Serious: Yes (Other)
  Sender: FDA-Public Use
  Company Number: NL-GENENTECH-259003

PATIENT
  Sex: Female
  Weight: 50 kg

DRUGS (4)
  1. HERCEPTIN [Suspect]
     Indication: BREAST CANCER
     Dosage: UNK, 1/WEEK
     Route: 042
     Dates: start: 20071023, end: 20080109
  2. HERCEPTIN [Suspect]
     Dosage: 6 MG/KG, Q3W
     Route: 042
     Dates: start: 20080220
  3. TAXOL [Suspect]
     Indication: BREAST CANCER
     Dosage: UNK, 1/WEEK
     Dates: start: 20071023, end: 20080109
  4. EFFEXOR [Concomitant]
     Indication: DRUG USE FOR UNKNOWN INDICATION

REACTIONS (1)
  - BIPOLAR I DISORDER [None]
